FAERS Safety Report 11054551 (Version 1)
Quarter: 2015Q2

REPORT INFORMATION
  Report Type: Spontaneous
  Country: US (occurrence: US)
  Receive Date: 20150422
  Receipt Date: 20150422
  Transmission Date: 20150821
  Serious: Yes (Other)
  Sender: FDA-Public Use
  Company Number: US-JNJFOC-2003127420

PATIENT
  Age: 3 Year
  Sex: Male

DRUGS (5)
  1. TYLENOL [Suspect]
     Active Substance: ACETAMINOPHEN
     Route: 048
  2. TYLENOL [Suspect]
     Active Substance: ACETAMINOPHEN
     Indication: PYREXIA
     Dosage: DAILY DOSE TEXT: UNSPECIFIED DOSE
     Route: 048
     Dates: start: 20031213
  3. MOTRIN [Suspect]
     Active Substance: IBUPROFEN
     Indication: PYREXIA
     Dosage: DAILY DOSE TEXT: UNSPECIFIED DOSE
     Route: 048
     Dates: start: 20031213
  4. MOTRIN [Suspect]
     Active Substance: IBUPROFEN
     Route: 048
  5. PEDIACARE COUGH-COLD [Suspect]
     Active Substance: CHLORPHENIRAMINE\DEXTROMETHORPHAN HYDROBROMIDE\PSEUDOEPHEDRINE HYDROCHLORIDE
     Indication: NASOPHARYNGITIS
     Dosage: DAILY DOSE TEXT: 1/4 TEASPOON ONCE
     Route: 048
     Dates: start: 20031213, end: 20031213

REACTIONS (4)
  - Vomiting [Unknown]
  - Ear infection [Unknown]
  - Seizure [Recovered/Resolved]
  - Pneumonia [Unknown]

NARRATIVE: CASE EVENT DATE: 20031213
